FAERS Safety Report 17718226 (Version 1)
Quarter: 2020Q2

REPORT INFORMATION
  Report Type: Report from Study
  Country: AR (occurrence: AR)
  Receive Date: 20200428
  Receipt Date: 20200428
  Transmission Date: 20200714
  Serious: Yes (Hospitalization, Other)
  Sender: FDA-Public Use
  Company Number: NVSC2020AR079970

PATIENT
  Sex: Female

DRUGS (2)
  1. COSENTYX [Suspect]
     Active Substance: SECUKINUMAB
     Indication: PSORIATIC ARTHROPATHY
     Dosage: 150 MG/ML, QMO
     Route: 058
     Dates: start: 201907
  2. CLEXANE [Concomitant]
     Active Substance: ENOXAPARIN SODIUM
     Indication: ANTICOAGULANT THERAPY
     Dosage: 20 OT, UNKNOWN
     Route: 058

REACTIONS (11)
  - Soft tissue sarcoma [Unknown]
  - Bone marrow oedema [Unknown]
  - Arthropathy [Unknown]
  - Osteonecrosis [Recovering/Resolving]
  - Fear [Unknown]
  - Anxiety [Unknown]
  - Peripheral arterial occlusive disease [Unknown]
  - Perthes disease [Unknown]
  - Arthralgia [Recovering/Resolving]
  - Synovitis [Unknown]
  - Femoroacetabular impingement [Unknown]
